FAERS Safety Report 7986857 (Version 2)
Quarter: 2013Q2

REPORT INFORMATION
  Report Type: Spontaneous
  Country: US (occurrence: US)
  Receive Date: 20110613
  Receipt Date: 20130509
  Transmission Date: 20140414
  Serious: Yes (Death, Other)
  Sender: FDA-Public Use
  Company Number: US-ELI_LILLY_AND_COMPANY-US201106000728

PATIENT
  Sex: Female
  Weight: 189.5 kg

DRUGS (1)
  1. ZYPREXA RELPREVV [Suspect]
     Dosage: 300 MG, UNKNOWN
     Route: 030
     Dates: start: 20110512

REACTIONS (2)
  - Obesity [Fatal]
  - Cardiomegaly [Unknown]
